FAERS Safety Report 8551715-5 (Version None)
Quarter: 2012Q3

REPORT INFORMATION
  Report Type: 
  Country: None (occurrence: None)
  Receive Date: 20120730
  Receipt Date: 20070705
  Transmission Date: 20120928
  Serious: Yes (Other)
  Sender: FDA-Public Use
  Company Number: CO-PFIZER INC-2012182856

PATIENT
  Age: 51 Year
  Sex: Female

DRUGS (5)
  1. METOPROLOL TARTRATE [Concomitant]
     Dosage: 100 MG, 2X/DAY
  2. QUINAPRIL AND HYDROCHLOROTHIAZIDE [Suspect]
     Indication: HYPERTENSION
     Dosage: [QUINAPRIL HCL 20 MG/ HYDROCHLOROTHIAZIDE 12.5 MG], EVERY 24 HOURS
  3. INSULIN HUMAN ZINC SUSPENSION [Concomitant]
     Dosage: (80-100 UI/ML) EVERY 12 HOURS
  4. AMLODIPINE [Concomitant]
     Dosage: 5 MG, 2X/DAY
  5. LIPITOR [Suspect]
     Indication: DYSLIPIDAEMIA
     Dosage: 10 MG, 1X/DAY

REACTIONS (3)
  - HYPERTENSIVE EMERGENCY [None]
  - PAIN IN EXTREMITY [None]
  - CHEST PAIN [None]
